FAERS Safety Report 6875210-4 (Version None)
Quarter: 2010Q3

REPORT INFORMATION
  Report Type: 
  Country: None (occurrence: None)
  Receive Date: 20100727
  Receipt Date: 20100715
  Transmission Date: 20110219
  Serious: Yes (Hospitalization, Other)
  Sender: FDA-Public Use
  Company Number: GB-JNJFOC-20100705223

PATIENT
  Sex: Male
  Weight: 75 kg

DRUGS (11)
  1. DARUNAVIR ETHANOLATE [Suspect]
     Indication: HIV INFECTION
     Route: 048
  2. CYCLOPHOSPHAMIDE [Concomitant]
     Indication: BURKITT'S LYMPHOMA
     Route: 042
  3. CYTARABINE [Concomitant]
     Indication: BURKITT'S LYMPHOMA
     Route: 042
  4. DOXORUBICIN HCL [Concomitant]
     Indication: BURKITT'S LYMPHOMA
  5. ETOPOSIDE [Concomitant]
     Indication: BURKITT'S LYMPHOMA
     Route: 042
  6. IFOSFAMIDE [Concomitant]
     Indication: BURKITT'S LYMPHOMA
     Route: 042
  7. METHOTREXATE [Concomitant]
     Indication: BURKITT'S LYMPHOMA
     Route: 042
  8. RITONAVIR [Concomitant]
     Indication: HIV INFECTION
     Route: 048
  9. RITUXIMAB [Concomitant]
     Indication: BURKITT'S LYMPHOMA
     Route: 042
  10. TRUVADA [Concomitant]
     Indication: HIV INFECTION
  11. VINCRISTINE [Concomitant]
     Indication: BURKITT'S LYMPHOMA
     Route: 042

REACTIONS (3)
  - ALANINE AMINOTRANSFERASE INCREASED [None]
  - HEPATITIS [None]
  - INTERNATIONAL NORMALISED RATIO INCREASED [None]
